FAERS Safety Report 7812668-8 (Version None)
Quarter: 2011Q4

REPORT INFORMATION
  Report Type: 
  Country: None (occurrence: None)
  Receive Date: 20111013
  Receipt Date: 20111010
  Transmission Date: 20120403
  Serious: Yes (Other)
  Sender: FDA-Public Use
  Company Number: DE-BRISTOL-MYERS SQUIBB COMPANY-16148496

PATIENT
  Age: 49 Year
  Sex: Male
  Weight: 87 kg

DRUGS (6)
  1. CETIRIZINE HCL [Concomitant]
     Indication: SEASONAL ALLERGY
     Dates: start: 20100704
  2. TRUVADA [Suspect]
     Indication: HIV INFECTION
     Route: 048
     Dates: start: 20100805, end: 20110904
  3. BLINDED: RITONAVIR [Suspect]
     Indication: HIV INFECTION
     Dates: start: 20100805, end: 20110904
  4. PLACEBO [Suspect]
     Indication: HIV INFECTION
     Dates: start: 20100805, end: 20110904
  5. ATAZANAVIR [Suspect]
     Indication: HIV INFECTION
     Route: 065
     Dates: start: 20100805, end: 20110904
  6. TRIAM [Concomitant]
     Indication: ALLERGY TO ARTHROPOD BITE
     Dates: start: 20110707

REACTIONS (1)
  - RENAL FAILURE [None]
